FAERS Safety Report 21961304 (Version 1)
Quarter: 2023Q1

REPORT INFORMATION
  Report Type: Spontaneous
  Country: US (occurrence: US)
  Receive Date: 20230207
  Receipt Date: 20230207
  Transmission Date: 20230418
  Serious: No
  Sender: FDA-Public Use
  Company Number: US-AUROBINDO-AUR-APL-2022-043504

PATIENT
  Age: 5 Year
  Sex: Female

DRUGS (1)
  1. AMOXICILLIN AND CLAVULANATE POTASSIUM [Suspect]
     Active Substance: AMOXICILLIN\CLAVULANATE POTASSIUM
     Indication: Pharyngitis
     Dosage: 1 DOSAGE FORM, TWO TIMES A DAY (1 TABLE SPOON BY MOUTH TWICE A DAY FOR 10 DAYS)
     Route: 048
     Dates: start: 20221008

REACTIONS (2)
  - Product storage error [Unknown]
  - Drug ineffective [Unknown]
